FAERS Safety Report 4941238-4 (Version None)
Quarter: 2006Q1

REPORT INFORMATION
  Report Type: 
  Country: None (occurrence: None)
  Receive Date: 20060310
  Receipt Date: 20060310
  Transmission Date: 20060701
  Serious: Yes (Other)
  Sender: FDA-Public Use
  Company Number: None

PATIENT
  Age: 58 Year
  Sex: Female
  Weight: 54.4316 kg

DRUGS (2)
  1. FEMARA [Suspect]
     Indication: BREAST CANCER
     Dosage: 2.5 MG DAILY PO
     Route: 048
     Dates: start: 20051108, end: 20060309
  2. FEMARA [Suspect]
     Indication: DRUG THERAPY
     Dosage: 2.5 MG DAILY PO
     Route: 048
     Dates: start: 20051108, end: 20060309

REACTIONS (5)
  - ARTHRALGIA [None]
  - DRUG INTERACTION [None]
  - MYALGIA [None]
  - NECK PAIN [None]
  - PAIN IN EXTREMITY [None]
